FAERS Safety Report 11842191 (Version 1)
Quarter: 2015Q4

REPORT INFORMATION
  Report Type: Spontaneous
  Country: US (occurrence: US)
  Receive Date: 20151216
  Receipt Date: 20151216
  Transmission Date: 20160305
  Serious: No
  Sender: FDA-Public Use
  Company Number: US-RB-074270-15

PATIENT
  Age: 12 Year
  Sex: Female

DRUGS (3)
  1. DELSYM [Suspect]
     Active Substance: DEXTROMETHORPHAN
     Indication: NASOPHARYNGITIS
     Dosage: 5ML. ,PRN
     Route: 065
     Dates: start: 20150218
  2. ADVIL [Concomitant]
     Active Substance: IBUPROFEN
     Indication: PRODUCT USED FOR UNKNOWN INDICATION
     Dosage: DOSE UNK, UNITS UNK, FREQUENCY UNK
     Route: 065
  3. DELSYM [Suspect]
     Active Substance: DEXTROMETHORPHAN
     Dosage: 5ML. PATIENT TOOK THE DRUG 2 TIMES,FREQUENCY UNK
     Route: 065
     Dates: start: 20150219

REACTIONS (3)
  - Drug ineffective [Not Recovered/Not Resolved]
  - Inappropriate schedule of drug administration [None]
  - Overdose [Recovered/Resolved]

NARRATIVE: CASE EVENT DATE: 20150218
